FAERS Safety Report 24783930 (Version 1)
Quarter: 2024Q4

REPORT INFORMATION
  Report Type: Spontaneous
  Country: CN (occurrence: CN)
  Receive Date: 20241227
  Receipt Date: 20241227
  Transmission Date: 20250114
  Serious: Yes (Other)
  Sender: ALEXION PHARMACEUTICALS
  Company Number: CN-ASTRAZENECA-202412CHN022054CN

PATIENT
  Age: 79 Year
  Weight: 63 kg

DRUGS (10)
  1. PULMICORT RESPULES [Suspect]
     Active Substance: BUDESONIDE
     Indication: Cholangitis infective
     Dosage: 1 MILLIGRAM, TID
  2. PULMICORT RESPULES [Suspect]
     Active Substance: BUDESONIDE
     Indication: Sputum abnormal
     Dosage: 1 MILLIGRAM, TID
     Route: 055
  3. PULMICORT RESPULES [Suspect]
     Active Substance: BUDESONIDE
     Indication: Asthma
     Dosage: 1 MILLIGRAM, TID
  4. PULMICORT RESPULES [Suspect]
     Active Substance: BUDESONIDE
     Dosage: 1 MILLIGRAM, TID
     Route: 055
  5. ALBUTEROL SULFATE [Suspect]
     Active Substance: ALBUTEROL SULFATE
     Indication: Cholangitis infective
     Dosage: 0.500 MILLIGRAM, TID
     Route: 055
  6. ALBUTEROL SULFATE [Suspect]
     Active Substance: ALBUTEROL SULFATE
     Indication: Sputum abnormal
     Dosage: 0.500 MILLIGRAM, TID
  7. ALBUTEROL SULFATE [Suspect]
     Active Substance: ALBUTEROL SULFATE
     Indication: Asthma
  8. IPRATROPIUM BROMIDE [Suspect]
     Active Substance: IPRATROPIUM BROMIDE
     Indication: Cholangitis acute
     Dosage: 0.5 MILLIGRAM, TID
     Route: 055
  9. IPRATROPIUM BROMIDE [Suspect]
     Active Substance: IPRATROPIUM BROMIDE
     Indication: Sputum abnormal
     Dosage: 0.5 MILLIGRAM, TID
  10. IPRATROPIUM BROMIDE [Suspect]
     Active Substance: IPRATROPIUM BROMIDE
     Indication: Asthma

REACTIONS (2)
  - Sinus tachycardia [Recovering/Resolving]
  - Heart rate increased [Recovering/Resolving]
